FAERS Safety Report 5331992-4 (Version None)
Quarter: 2007Q2

REPORT INFORMATION
  Report Type: 
  Country: None (occurrence: None)
  Receive Date: 20070523
  Receipt Date: 20070515
  Transmission Date: 20071010
  Serious: No
  Sender: FDA-Public Use
  Company Number: US-BAXTER-2007BH002970

PATIENT

DRUGS (1)
  1. TISSUCOL/TISSEEL KIT STIM4 [Suspect]
     Indication: SURGERY
     Dosage: DOSE UNIT:UNKNOWN
     Route: 065

REACTIONS (1)
  - STAPHYLOCOCCAL INFECTION [None]
